FAERS Safety Report 5738126-2 (Version None)
Quarter: 2008Q2

REPORT INFORMATION
  Report Type: 
  Country: None (occurrence: None)
  Receive Date: 20080509
  Receipt Date: 20071102
  Transmission Date: 20081010
  Serious: Yes (Hospitalization)
  Sender: FDA-Public Use
  Company Number: PHEH2007US14051

PATIENT
  Age: 71 Year
  Sex: Female
  Weight: 62.4 kg

DRUGS (7)
  1. TEGRETOL [Suspect]
     Indication: TRIGEMINAL NEURALGIA
     Dosage: 200 MG, BID, ORAL; 200 MG, TID, ORAL
     Route: 048
     Dates: end: 20071022
  2. TEGRETOL [Suspect]
     Indication: TRIGEMINAL NEURALGIA
     Dosage: 200 MG, BID, ORAL; 200 MG, TID, ORAL
     Route: 048
     Dates: start: 20071022, end: 20071026
  3. CALAN [Suspect]
     Indication: HYPERTENSION
     Dosage: 360 MG, QD, ORAL
     Route: 048
     Dates: start: 20071022, end: 20071026
  4. DEPAKOTE [Concomitant]
  5. LEXAPRO [Concomitant]
  6. LYRICA [Concomitant]
  7. TIZANIDINE HCL [Concomitant]

REACTIONS (2)
  - ANTICONVULSANT DRUG LEVEL INCREASED [None]
  - HYPERTENSION [None]
